FAERS Safety Report 17306738 (Version 1)
Quarter: 2020Q1

REPORT INFORMATION
  Report Type: Spontaneous
  Country: GB (occurrence: GB)
  Receive Date: 20200123
  Receipt Date: 20200123
  Transmission Date: 20200409
  Serious: Yes (Other)
  Sender: FDA-Public Use
  Company Number: NVSC2020GB011479

PATIENT
  Age: 70 Year
  Sex: Female
  Weight: 50.8 kg

DRUGS (4)
  1. PROLIA [Suspect]
     Active Substance: DENOSUMAB
     Indication: OSTEOPOROSIS
     Dosage: 60 MG
     Route: 051
     Dates: start: 20170913
  2. OMEPRAZOLE. [Suspect]
     Active Substance: OMEPRAZOLE
     Indication: PRODUCT USED FOR UNKNOWN INDICATION
     Dosage: UNK
     Route: 065
     Dates: start: 20180614, end: 20180712
  3. PENTASA [Concomitant]
     Active Substance: MESALAMINE
     Indication: PRODUCT USED FOR UNKNOWN INDICATION
     Dosage: UNK
     Route: 065
  4. VALIUM [Concomitant]
     Active Substance: DIAZEPAM
     Indication: PRODUCT USED FOR UNKNOWN INDICATION
     Dosage: UNK (OCCASIONAL PRESCRIBED LOW STRENGTH VALIUM TO COUNTERACT PROBLEMS)
     Route: 065

REACTIONS (21)
  - Migraine [Recovered/Resolved]
  - Muscle spasms [Not Recovered/Not Resolved]
  - Facial paralysis [Recovered/Resolved]
  - Suicidal ideation [Recovered/Resolved]
  - Hallucination [Recovered/Resolved]
  - Panic attack [Not Recovered/Not Resolved]
  - Flatulence [Recovered/Resolved]
  - Abdominal pain lower [Recovered/Resolved]
  - Depression [Recovered/Resolved]
  - Confusional state [Recovered/Resolved]
  - Fatigue [Recovered/Resolved]
  - Emotional disorder [Not Recovered/Not Resolved]
  - Abnormal loss of weight [Not Recovered/Not Resolved]
  - Memory impairment [Not Recovered/Not Resolved]
  - Paraesthesia oral [Recovered/Resolved]
  - Malaise [Recovered/Resolved]
  - Dry mouth [Recovered/Resolved]
  - Pain [Recovered/Resolved]
  - Agitation [Recovered/Resolved]
  - Dizziness [Recovered/Resolved]
  - Headache [Not Recovered/Not Resolved]

NARRATIVE: CASE EVENT DATE: 20170920
